FAERS Safety Report 4912405-0 (Version None)
Quarter: 2006Q1

REPORT INFORMATION
  Report Type: 
  Country: None (occurrence: None)
  Receive Date: 20060215
  Receipt Date: 20050228
  Transmission Date: 20060701
  Serious: No
  Sender: FDA-Public Use
  Company Number: US-GLAXOSMITHKLINE-A0547569A

PATIENT
  Age: 50 Year
  Sex: Female

DRUGS (5)
  1. VALTREX [Suspect]
     Route: 048
     Dates: start: 20000101
  2. TENORMIN [Concomitant]
  3. DEXEDRINE [Concomitant]
  4. ATIVAN [Concomitant]
  5. NEURONTIN [Concomitant]

REACTIONS (2)
  - DRUG INEFFECTIVE [None]
  - HERPES SIMPLEX [None]
